FAERS Safety Report 9468416 (Version 2)
Quarter: 2013Q3

REPORT INFORMATION
  Report Type: Report from Study
  Country: US (occurrence: US)
  Receive Date: 20130821
  Receipt Date: 20130821
  Transmission Date: 20140515
  Serious: Yes (Hospitalization)
  Sender: FDA-Public Use
  Company Number: US-ACTELION-A-NJ2012-72050

PATIENT
  Age: 81 Year
  Sex: Female

DRUGS (2)
  1. TRACLEER [Suspect]
     Indication: PULMONARY ARTERIAL HYPERTENSION
     Dosage: UNK
     Route: 048
     Dates: start: 20060330
  2. SILDENAFIL [Concomitant]

REACTIONS (6)
  - Confusional state [Unknown]
  - Hyperhidrosis [Unknown]
  - Chest pain [Unknown]
  - Syncope [Recovering/Resolving]
  - Dizziness [Recovering/Resolving]
  - Amnesia [Unknown]
